FAERS Safety Report 5138717-6 (Version None)
Quarter: 2006Q4

REPORT INFORMATION
  Report Type: 
  Country: None (occurrence: None)
  Receive Date: 20061030
  Receipt Date: 20061018
  Transmission Date: 20070319
  Serious: Yes (Hospitalization)
  Sender: FDA-Public Use
  Company Number: NL-ROCHE-467834

PATIENT
  Age: 59 Year
  Weight: 89 kg

DRUGS (4)
  1. LARIAM [Suspect]
     Indication: MALARIA PROPHYLAXIS
     Route: 048
     Dates: start: 20060930, end: 20060930
  2. COVERSYL PLUS [Concomitant]
     Dosage: STRENGTH REPORTED AS 4/1,25 MG.
     Route: 048
  3. METOPROLOL TARTRATE [Concomitant]
     Route: 048
  4. SIMVASTATIN [Concomitant]
     Route: 048

REACTIONS (1)
  - HYPERTENSIVE CRISIS [None]
